FAERS Safety Report 13901683 (Version 1)
Quarter: 2017Q3

REPORT INFORMATION
  Report Type: Spontaneous
  Country: DE (occurrence: DE)
  Receive Date: 20170824
  Receipt Date: 20170824
  Transmission Date: 20171127
  Serious: Yes (Congenital Anomaly)
  Sender: FDA-Public Use
  Company Number: DE-PFIZER INC-2017357835

PATIENT
  Sex: Male
  Weight: 3.97 kg

DRUGS (11)
  1. NYSTATIN. [Concomitant]
     Active Substance: NYSTATIN
     Indication: VULVOVAGINAL MYCOTIC INFECTION
     Dosage: UNK
     Route: 064
     Dates: start: 20160512, end: 20160526
  2. OXYTOCIN. [Concomitant]
     Active Substance: OXYTOCIN
     Indication: LABOUR INDUCTION
     Dosage: UNK
     Route: 064
     Dates: start: 20170122, end: 20170122
  3. INIMUR MYKO [Concomitant]
     Indication: VULVOVAGINAL MYCOTIC INFECTION
     Dosage: UNK
     Route: 064
     Dates: start: 20160430, end: 20160503
  4. LEVETIRACETAM. [Suspect]
     Active Substance: LEVETIRACETAM
     Indication: EPILEPSY
     Dosage: 500 MG, 2X/DAY
     Route: 064
     Dates: start: 20160414, end: 20170122
  5. WICK INHALIERSTIFT N [Concomitant]
     Indication: NASOPHARYNGITIS
     Dosage: UNK
     Route: 064
     Dates: start: 20160609, end: 20160609
  6. SERTRALINE HCL [Suspect]
     Active Substance: SERTRALINE HYDROCHLORIDE
     Indication: DEPRESSION
     Dosage: 50 MG, DAILY
     Route: 064
     Dates: start: 20160414, end: 20170122
  7. BALDRIAN-DISPERT [Concomitant]
     Indication: SLEEP DISORDER
     Dosage: 45 MG, 1X/DAY
     Route: 064
     Dates: start: 20160414, end: 20160707
  8. VITAMIN D [Concomitant]
     Active Substance: CHOLECALCIFEROL
     Indication: VITAMIN D DEFICIENCY
     Dosage: 1000 IU, 1X/DAY
     Route: 064
     Dates: start: 20160609, end: 20170118
  9. EFEROX [Concomitant]
     Active Substance: LEVOTHYROXINE SODIUM
     Indication: HYPOTHYROIDISM
     Dosage: 112 UG, 1X/DAY
     Route: 064
     Dates: start: 20160414, end: 20170122
  10. FEMIBION 1 [Concomitant]
     Indication: PROPHYLAXIS OF NEURAL TUBE DEFECT
     Dosage: 0.8 [MG/D (BIS 0.4)
     Route: 064
     Dates: start: 20160414, end: 20160706
  11. BEPANTHENE [Concomitant]
     Active Substance: DEXPANTHENOL
     Indication: NASAL DISCOMFORT
     Dosage: UNK
     Route: 064
     Dates: start: 20160414, end: 20160706

REACTIONS (2)
  - Maternal exposure during pregnancy [Unknown]
  - Cerebral haemorrhage neonatal [Unknown]

NARRATIVE: CASE EVENT DATE: 20170122
